FAERS Safety Report 5540542-9 (Version None)
Quarter: 2007Q4

REPORT INFORMATION
  Report Type: 
  Country: None (occurrence: None)
  Receive Date: 20071129
  Receipt Date: 20070423
  Transmission Date: 20080405
  Serious: Yes (Other)
  Sender: FDA-Public Use
  Company Number: US200704005347

PATIENT
  Age: 45 Year
  Sex: Female

DRUGS (2)
  1. ZYPREXA [Suspect]
     Dosage: 25 MG, ORAL
     Route: 048
  2. DEPAKOTE [Concomitant]

REACTIONS (2)
  - CONVULSION [None]
  - OVERDOSE [None]
